FAERS Safety Report 5708361-8 (Version None)
Quarter: 2008Q2

REPORT INFORMATION
  Report Type: 
  Country: None (occurrence: None)
  Receive Date: 20080417
  Receipt Date: 20080408
  Transmission Date: 20081010
  Serious: Yes (Other)
  Sender: FDA-Public Use
  Company Number: FR-PFIZER INC-2008031184

PATIENT
  Age: 51 Year
  Sex: Female

DRUGS (4)
  1. CHAMPIX [Suspect]
     Indication: SMOKING CESSATION THERAPY
     Route: 048
     Dates: start: 20080216, end: 20080226
  2. PAROXETINE MESILATE [Concomitant]
     Indication: DEPRESSION
     Route: 048
  3. ALPRAZOLAM [Concomitant]
     Indication: DEPRESSION
     Route: 048
  4. ACETYLSALICYLATE LYSINE [Concomitant]
     Indication: ARTERIOSCLEROSIS
     Route: 048

REACTIONS (4)
  - AFFECTIVE DISORDER [None]
  - ASTHENIA [None]
  - HEADACHE [None]
  - PARAESTHESIA [None]
